FAERS Safety Report 7035963-1 (Version None)
Quarter: 2010Q4

REPORT INFORMATION
  Report Type: 
  Country: None (occurrence: None)
  Receive Date: 20101008
  Receipt Date: 20100929
  Transmission Date: 20110411
  Serious: Yes (Other)
  Sender: FDA-Public Use
  Company Number: US-PFIZER INC-2010113679

PATIENT
  Sex: Male

DRUGS (8)
  1. CHANTIX [Suspect]
     Indication: SMOKING CESSATION THERAPY
     Dosage: UNK
     Route: 048
     Dates: start: 20100701, end: 20100101
  2. VALIUM [Suspect]
     Indication: EMOTIONAL DISORDER
     Dosage: FREQUENCY: AS NEEDED,
  3. VALIUM [Suspect]
     Indication: STRESS
  4. ACETYLSALICYLIC ACID [Concomitant]
  5. NOVOLOG [Concomitant]
  6. INSULIN DETEMIR [Concomitant]
  7. METFORMIN [Concomitant]
  8. BENICAR [Concomitant]

REACTIONS (4)
  - ANXIETY [None]
  - DEPRESSION [None]
  - EMOTIONAL DISTRESS [None]
  - MOOD SWINGS [None]
